FAERS Safety Report 10047662 (Version 2)
Quarter: 2014Q2

REPORT INFORMATION
  Report Type: Spontaneous
  Country: JP (occurrence: JP)
  Receive Date: 20140331
  Receipt Date: 20140408
  Transmission Date: 20141212
  Serious: Yes (Other)
  Sender: FDA-Public Use
  Company Number: JP-PFIZER INC-2014089254

PATIENT
  Age: 48 Year
  Sex: Male

DRUGS (1)
  1. LYRICA [Suspect]
     Indication: NEURALGIA
     Dosage: 25 MG/DAY
     Route: 048

REACTIONS (3)
  - Drug eruption [Recovering/Resolving]
  - Oedema [Recovering/Resolving]
  - Blister [Recovering/Resolving]
